FAERS Safety Report 8834177 (Version 1)
Quarter: 2012Q4

REPORT INFORMATION
  Report Type: Spontaneous
  Country: GB (occurrence: None)
  Receive Date: 20121009
  Receipt Date: 20121009
  Transmission Date: 20130627
  Serious: Yes (Hospitalization)
  Sender: FDA-Public Use
  Company Number: 2012AP003172

PATIENT
  Age: 91 Year
  Sex: Female

DRUGS (8)
  1. OMEPRAZOLE (OMEPRAZOLE) [Suspect]
     Indication: DRUG USE FOR UNKNOWN INDICATION
     Route: 048
     Dates: start: 20120910
  2. DALTEPARIN (DALTEPARIN) [Concomitant]
  3. FLUDROCORTISONE (FLUDROCORTISONE) [Concomitant]
  4. FOLIC ACID (FOLIC ACID) [Concomitant]
  5. LOPERAMIDE (LOPERAMIDE) [Concomitant]
  6. SANDO K [Concomitant]
  7. THIAMINE (THIAMINE) [Concomitant]
  8. VITAMIN B COMPLEX [Concomitant]

REACTIONS (3)
  - Hypomagnesaemia [None]
  - Atrial fibrillation [None]
  - Fall [None]
